FAERS Safety Report 6276777-X (Version None)
Quarter: 2009Q3

REPORT INFORMATION
  Report Type: 
  Country: None (occurrence: None)
  Receive Date: 20090722
  Receipt Date: 20080820
  Transmission Date: 20100115
  Serious: No
  Sender: FDA-Public Use
  Company Number: US-BRISTOL-MYERS SQUIBB COMPANY-14308266

PATIENT
  Age: 60 Year
  Sex: Male

DRUGS (1)
  1. COUMADIN [Suspect]
     Indication: PULMONARY EMBOLISM
     Dosage: STARTED 1.5YEARS AGO. TAKEN DAILY.

REACTIONS (7)
  - ANXIETY [None]
  - ASTHMA [None]
  - GAIT DISTURBANCE [None]
  - GENERAL PHYSICAL HEALTH DETERIORATION [None]
  - HEADACHE [None]
  - INTERNATIONAL NORMALISED RATIO FLUCTUATION [None]
  - POSTNASAL DRIP [None]
